FAERS Safety Report 11137723 (Version 1)
Quarter: 2015Q2

REPORT INFORMATION
  Report Type: Spontaneous
  Country: CN (occurrence: CN)
  Receive Date: 20150526
  Receipt Date: 20150526
  Transmission Date: 20150821
  Serious: Yes (Life-Threatening, Hospitalization, Other)
  Sender: FDA-Public Use
  Company Number: CN-EPIC PHARMA LLC-2015EPC00004

PATIENT
  Age: 28 Year
  Sex: Female

DRUGS (1)
  1. AMLODIPINE [Suspect]
     Active Substance: AMLODIPINE BESYLATE
     Dosage: 420 MG, ONCE
     Route: 048

REACTIONS (17)
  - Suicide attempt [Recovered/Resolved]
  - Oliguria [Recovered/Resolved]
  - Heart rate increased [None]
  - Oedema peripheral [Recovered/Resolved]
  - Loss of consciousness [Recovered/Resolved]
  - Intentional overdose [Recovered/Resolved]
  - Palpitations [None]
  - Pulmonary oedema [None]
  - Metabolic acidosis [Recovered/Resolved]
  - Dilatation ventricular [Recovered/Resolved]
  - Dizziness [None]
  - Acute respiratory failure [Recovered/Resolved]
  - Hypoxia [None]
  - Fatigue [None]
  - Shock [Recovered/Resolved]
  - Non-cardiogenic pulmonary oedema [Recovered/Resolved]
  - Hypocalcaemia [Recovered/Resolved]
